FAERS Safety Report 16644822 (Version 3)
Quarter: 2019Q3

REPORT INFORMATION
  Report Type: Spontaneous
  Country: ES (occurrence: ES)
  Receive Date: 20190729
  Receipt Date: 20190808
  Transmission Date: 20191004
  Serious: Yes (Death, Hospitalization, Other)
  Sender: FDA-Public Use
  Company Number: ES-PFIZER INC-2019320987

PATIENT
  Age: 74 Year
  Sex: Female

DRUGS (12)
  1. DOXORUBICIN HCL [Suspect]
     Active Substance: DOXORUBICIN HYDROCHLORIDE
     Indication: MYELODYSPLASTIC SYNDROME
     Dosage: UNK (LIPOSOMAL)
  2. PREDNISONE. [Suspect]
     Active Substance: PREDNISONE
     Indication: DIFFUSE LARGE B-CELL LYMPHOMA
  3. PREDNISONE. [Suspect]
     Active Substance: PREDNISONE
     Indication: METASTASES TO HEART
  4. PREDNISONE. [Suspect]
     Active Substance: PREDNISONE
     Indication: METASTASES TO LUNG
  5. DOXORUBICIN HCL [Suspect]
     Active Substance: DOXORUBICIN HYDROCHLORIDE
     Indication: DIFFUSE LARGE B-CELL LYMPHOMA
  6. RITUXIMAB. [Suspect]
     Active Substance: RITUXIMAB
     Indication: METASTASES TO HEART
  7. RITUXIMAB. [Suspect]
     Active Substance: RITUXIMAB
     Indication: METASTASES TO LUNG
  8. DOXORUBICIN HCL [Suspect]
     Active Substance: DOXORUBICIN HYDROCHLORIDE
     Indication: METASTASES TO HEART
  9. RITUXIMAB. [Suspect]
     Active Substance: RITUXIMAB
     Indication: MYELODYSPLASTIC SYNDROME
     Dosage: UNK
  10. RITUXIMAB. [Suspect]
     Active Substance: RITUXIMAB
     Indication: DIFFUSE LARGE B-CELL LYMPHOMA
  11. PREDNISONE. [Suspect]
     Active Substance: PREDNISONE
     Indication: MYELODYSPLASTIC SYNDROME
     Dosage: UNK
  12. DOXORUBICIN HCL [Suspect]
     Active Substance: DOXORUBICIN HYDROCHLORIDE
     Indication: METASTASES TO LUNG

REACTIONS (2)
  - Cardiotoxicity [Fatal]
  - Acute respiratory distress syndrome [Fatal]
